FAERS Safety Report 23657908 (Version 1)
Quarter: 2024Q1

REPORT INFORMATION
  Report Type: Spontaneous
  Country: FR (occurrence: FR)
  Receive Date: 20240321
  Receipt Date: 20240321
  Transmission Date: 20240410
  Serious: Yes (Other)
  Sender: FDA-Public Use
  Company Number: FR-OTSUKA-2024_006943

PATIENT
  Age: 86 Year
  Sex: Female
  Weight: 85 kg

DRUGS (1)
  1. ABILIFY MAINTENA [Suspect]
     Active Substance: ARIPIPRAZOLE
     Indication: Product used for unknown indication
     Dosage: 300 MG, QM
     Route: 065
     Dates: start: 202303

REACTIONS (11)
  - Joint swelling [Unknown]
  - Gait disturbance [Unknown]
  - Aphasia [Unknown]
  - Visual impairment [Unknown]
  - Incontinence [Unknown]
  - Erythema [Unknown]
  - Salivary hypersecretion [Unknown]
  - Muscle spasms [Unknown]
  - Weight increased [Unknown]
  - Alopecia [Unknown]
  - Off label use [Unknown]

NARRATIVE: CASE EVENT DATE: 20230301
